FAERS Safety Report 5058494-7 (Version None)
Quarter: 2006Q3

REPORT INFORMATION
  Report Type: 
  Country: None (occurrence: None)
  Receive Date: 20060721
  Receipt Date: 20060612
  Transmission Date: 20061208
  Serious: Yes (Hospitalization, Other)
  Sender: FDA-Public Use
  Company Number: JP-ABBOTT-06P-087-0335723-00

PATIENT
  Sex: Female
  Weight: 14.9 kg

DRUGS (6)
  1. CEFZON FINE GRANULE [Suspect]
     Indication: UPPER RESPIRATORY TRACT INFLAMMATION
     Route: 048
     Dates: start: 20040616, end: 20040618
  2. CEFZON FINE GRANULE [Suspect]
     Indication: PHARYNGITIS
  3. ANHIBA [Suspect]
     Indication: HYPERTHERMIA
     Route: 054
     Dates: start: 20040616, end: 20040626
  4. CEFPODOXIME PROXETIL [Suspect]
     Indication: UPPER RESPIRATORY TRACT INFLAMMATION
     Route: 048
     Dates: start: 20040627, end: 20040628
  5. ACETAMINOPHEN [Suspect]
     Indication: HYPERTHERMIA
     Route: 048
     Dates: start: 20040627, end: 20040628
  6. BIOFERMIN [Concomitant]
     Indication: DRUG USE FOR UNKNOWN INDICATION
     Dates: start: 20060627

REACTIONS (11)
  - ALANINE AMINOTRANSFERASE INCREASED [None]
  - ASPARTATE AMINOTRANSFERASE INCREASED [None]
  - BLOOD BILIRUBIN INCREASED [None]
  - CHEILITIS [None]
  - CONJUNCTIVAL HYPERAEMIA [None]
  - ERYTHEMA [None]
  - GAMMA-GLUTAMYLTRANSFERASE INCREASED [None]
  - HEPATITIS CHOLESTATIC [None]
  - RESTLESSNESS [None]
  - STEVENS-JOHNSON SYNDROME [None]
  - TOXIC EPIDERMAL NECROLYSIS [None]
